FAERS Safety Report 10141582 (Version 1)
Quarter: 2014Q2

REPORT INFORMATION
  Report Type: Spontaneous
  Country: JP (occurrence: JP)
  Receive Date: 20140429
  Receipt Date: 20140429
  Transmission Date: 20141212
  Serious: Yes (Hospitalization)
  Sender: FDA-Public Use
  Company Number: JP-GLAXOSMITHKLINE-B0989133A

PATIENT
  Age: 67 Year
  Sex: Male

DRUGS (1)
  1. VOTRIENT 200MG [Suspect]
     Indication: UNDIFFERENTIATED SARCOMA
     Dosage: 800MG PER DAY
     Route: 048
     Dates: start: 20140414, end: 20140421

REACTIONS (2)
  - Intestinal perforation [Not Recovered/Not Resolved]
  - Paronychia [Not Recovered/Not Resolved]
